FAERS Safety Report 16423559 (Version 2)
Quarter: 2020Q4

REPORT INFORMATION
  Report Type: Spontaneous
  Country: US (occurrence: US)
  Receive Date: 20190613
  Receipt Date: 20201110
  Transmission Date: 20210113
  Serious: Yes (Other)
  Sender: FDA-Public Use
  Company Number: US-ABBVIE-19K-163-2809521-00

PATIENT
  Age: 59 Year
  Sex: Male

DRUGS (5)
  1. IMBRUVICA [Suspect]
     Active Substance: IBRUTINIB
     Route: 048
  2. VENETOCLAX. [Suspect]
     Active Substance: VENETOCLAX
     Indication: PRODUCT USED FOR UNKNOWN INDICATION
     Route: 048
     Dates: end: 201903
  3. RITUXIMAB. [Concomitant]
     Active Substance: RITUXIMAB
     Indication: PRODUCT USED FOR UNKNOWN INDICATION
  4. VENETOCLAX. [Suspect]
     Active Substance: VENETOCLAX
     Route: 048
     Dates: start: 201903
  5. IMBRUVICA [Suspect]
     Active Substance: IBRUTINIB
     Indication: CHRONIC LYMPHOCYTIC LEUKAEMIA
     Route: 048
     Dates: start: 2011

REACTIONS (9)
  - Disease recurrence [Unknown]
  - Infection [Unknown]
  - Muscle spasms [Unknown]
  - Toxicity to various agents [Not Recovered/Not Resolved]
  - Gastrointestinal disorder [Unknown]
  - Procedural haemorrhage [Unknown]
  - Post procedural contusion [Unknown]
  - Medical procedure [Unknown]
  - Nail infection [Unknown]

NARRATIVE: CASE EVENT DATE: 201801
